FAERS Safety Report 9295613 (Version 1)
Quarter: 2013Q1

REPORT INFORMATION
  Report Type: Spontaneous
  Country: US (occurrence: None)
  Receive Date: 20121227
  Receipt Date: 20121227
  Transmission Date: 20140127
  Serious: Yes (Other)
  Sender: FDA-Public Use
  Company Number: PHEH2007US016481

PATIENT
  Age: 77 Year
  Sex: Male
  Weight: 81.92 kg

DRUGS (10)
  1. EXJADE [Suspect]
     Indication: APLASTIC ANAEMIA
     Route: 048
     Dates: start: 20070705, end: 20070811
  2. EXJADE [Suspect]
     Indication: HAEMOCHROMATOSIS
     Route: 048
     Dates: start: 20070705, end: 20070811
  3. CYCLOSPORINE (CICLOSPORIN) [Concomitant]
  4. TYLENOL (PARACETAMOL) [Concomitant]
  5. FLOMAX (TASULOSIN HYDROCHLORIDE) [Concomitant]
  6. EFFEXOR (VENLAFAXINE HYDROCHLORIDE) UNKNOWN [Concomitant]
  7. MIRAPLEX (PRAMIPEXOLE DIHYDROCHLORIDE) [Concomitant]
  8. ACYCLOVIR (ACICLOVIR) (ACICLOVIR) [Concomitant]
  9. TRAZODONE (TRAZODONE) [Concomitant]
  10. STEROIDS NOS (NO INGREDIENTS/SUBSTANCES) [Concomitant]

REACTIONS (3)
  - Haemochromatosis [None]
  - Transferrin saturation [None]
  - Serum ferritin increased [None]
